FAERS Safety Report 6138341-2 (Version None)
Quarter: 2009Q1

REPORT INFORMATION
  Report Type: 
  Country: None (occurrence: None)
  Receive Date: 20090327
  Receipt Date: 20090327
  Transmission Date: 20090719
  Serious: Yes (Other)
  Sender: FDA-Public Use
  Company Number: None

PATIENT
  Sex: Female
  Weight: 63.5036 kg

DRUGS (2)
  1. LAMICTAL [Suspect]
     Indication: BIPOLAR DISORDER
     Dosage: 200 MG 1 PER DAY PO
     Route: 048
     Dates: start: 20090315, end: 20090326
  2. LAMICTAL [Concomitant]

REACTIONS (5)
  - FEELING DRUNK [None]
  - GAIT DISTURBANCE [None]
  - JOB DISSATISFACTION [None]
  - PRODUCT QUALITY ISSUE [None]
  - VISUAL IMPAIRMENT [None]
